FAERS Safety Report 17401476 (Version 4)
Quarter: 2020Q3

REPORT INFORMATION
  Report Type: Report from Study
  Country: CA (occurrence: CA)
  Receive Date: 20200211
  Receipt Date: 20200825
  Transmission Date: 20201102
  Serious: Yes (Hospitalization, Other)
  Sender: FDA-Public Use
  Company Number: PHHY2018CA065358

PATIENT
  Age: 72 Year
  Sex: Male
  Weight: 104.9 kg

DRUGS (3)
  1. ENTRESTO [Suspect]
     Active Substance: SACUBITRIL\VALSARTAN
     Dosage: 200 MG (97/103 MG 2 TABLETS)
     Route: 048
     Dates: start: 20170203
  2. ENTRESTO [Suspect]
     Active Substance: SACUBITRIL\VALSARTAN
     Indication: CARDIAC FAILURE
     Dosage: 2 DF (24/26 MG)
     Route: 048
     Dates: start: 20170102, end: 20170118
  3. ENTRESTO [Suspect]
     Active Substance: SACUBITRIL\VALSARTAN
     Dosage: 2 DF (49/51 MG)
     Route: 048
     Dates: start: 20170118, end: 20170202

REACTIONS (5)
  - Choking [Not Recovered/Not Resolved]
  - Syncope [Recovered/Resolved]
  - Fracture [Recovered/Resolved]
  - Dysphagia [Not Recovered/Not Resolved]
  - Asphyxia [Recovered/Resolved]

NARRATIVE: CASE EVENT DATE: 20190501
